FAERS Safety Report 7001127-0 (Version None)
Quarter: 2010Q3

REPORT INFORMATION
  Report Type: 
  Country: None (occurrence: None)
  Receive Date: 20100920
  Receipt Date: 20100909
  Transmission Date: 20110219
  Serious: Yes (Other)
  Sender: FDA-Public Use
  Company Number: PHHY2010US55422

PATIENT
  Sex: Male

DRUGS (3)
  1. EXJADE [Suspect]
     Dosage: 500 MG, QD
     Route: 048
  2. REVLIMID [Suspect]
  3. TRANSFUSIONS [Concomitant]

REACTIONS (2)
  - LOSS OF CONSCIOUSNESS [None]
  - VISUAL IMPAIRMENT [None]
